FAERS Safety Report 11475302 (Version 1)
Quarter: 2015Q3

REPORT INFORMATION
  Report Type: Spontaneous
  Country: US (occurrence: None)
  Receive Date: 20150908
  Receipt Date: 20150908
  Transmission Date: 20151125
  Serious: Yes (Other)
  Sender: FDA-Public Use
  Company Number: None

PATIENT
  Age: 45 Year
  Sex: Female
  Weight: 71.67 kg

DRUGS (3)
  1. VIVELLE [Concomitant]
     Active Substance: ESTRADIOL
  2. FLONASE [Concomitant]
     Active Substance: FLUTICASONE PROPIONATE
  3. ESTROGEN REPLACEMENT 0.1 MG SANDOZ [Suspect]
     Active Substance: ESTROGENS
     Indication: HYSTERECTOMY
     Dosage: APPLIED AS MEDICATED PATCH TO SKIN
     Dates: start: 20150815, end: 20150905

REACTIONS (7)
  - Feeling jittery [None]
  - Insomnia [None]
  - Product substitution issue [None]
  - Decreased appetite [None]
  - Anger [None]
  - Hot flush [None]
  - Anxiety [None]

NARRATIVE: CASE EVENT DATE: 20150905
